FAERS Safety Report 8880179 (Version 1)
Quarter: 2012Q4

REPORT INFORMATION
  Report Type: 
  Country: US (occurrence: US)
  Receive Date: 20121101
  Receipt Date: 20121101
  Transmission Date: 20130627
  Serious: Yes (Other)
  Sender: FDA-Public Use
  Company Number: US-BAYER-2012-111326

PATIENT
  Age: 59 Year
  Sex: Female
  Weight: 70 kg

DRUGS (4)
  1. DOMEBORO POWDER PACKETS [Suspect]
     Indication: POISON IVY RASH
     Dosage: bottle count 12s
     Route: 061
     Dates: start: 20121002, end: 20121002
  2. MULTIVITAMIN [Concomitant]
  3. LISINOPRIL [Concomitant]
  4. VITAMIN D [Concomitant]

REACTIONS (1)
  - Application site vesicles [Recovered/Resolved]
